FAERS Safety Report 12432744 (Version 1)
Quarter: 2016Q2

REPORT INFORMATION
  Report Type: Spontaneous
  Country: US (occurrence: US)
  Receive Date: 20160603
  Receipt Date: 20160603
  Transmission Date: 20160815
  Serious: Yes (Life-Threatening)
  Sender: FDA-Public Use
  Company Number: US-BAYER-2016-105833

PATIENT
  Sex: Female

DRUGS (2)
  1. BAYER GENUINE ASPIRIN [Interacting]
     Active Substance: ASPIRIN
     Dosage: UNK, QD
  2. ALEVE [Suspect]
     Active Substance: NAPROXEN SODIUM
     Indication: ARTHRALGIA

REACTIONS (5)
  - Labelled drug-drug interaction medication error [None]
  - Drug administration error [None]
  - Gastrointestinal haemorrhage [None]
  - Oesophageal disorder [None]
  - Product use issue [None]
